FAERS Safety Report 6866399-1 (Version None)
Quarter: 2010Q2

REPORT INFORMATION
  Report Type: 
  Country: None (occurrence: None)
  Receive Date: 20100602
  Receipt Date: 20090420
  Transmission Date: 20101027
  Serious: Yes (Hospitalization)
  Sender: FDA-Public Use
  Company Number: 192401USA

PATIENT
  Age: 74 Year
  Sex: Male

DRUGS (6)
  1. CEPHALEXIN [Suspect]
     Indication: PROPHYLAXIS
     Dosage: 1500 MG (500 MG, 3 IN 1 D), ORAL
     Route: 048
     Dates: start: 20090409, end: 20090414
  2. CLOPIDOGREL [Concomitant]
  3. MORNIFLUMATE [Concomitant]
  4. LISINOPRIL [Concomitant]
  5. METFORMIN HCL [Concomitant]
  6. GABAPENTIN [Concomitant]

REACTIONS (2)
  - DIARRHOEA [None]
  - VOMITING [None]
